FAERS Safety Report 7529075-8 (Version None)
Quarter: 2011Q2

REPORT INFORMATION
  Report Type: 
  Country: None (occurrence: None)
  Receive Date: 20110607
  Receipt Date: 20110606
  Transmission Date: 20111010
  Serious: Yes (Death, Other)
  Sender: FDA-Public Use
  Company Number: GB-PFIZER INC-2010107212

PATIENT
  Age: 41 Year
  Sex: Male

DRUGS (3)
  1. CLOZAPINE [Suspect]
     Dosage: 650 MG DAILY
  2. SERTRALINE HYDROCHLORIDE [Suspect]
     Dosage: UNK
  3. AMITRIPTYLINE HYDROCHLORIDE [Suspect]
     Dosage: UNK

REACTIONS (2)
  - TOXICITY TO VARIOUS AGENTS [None]
  - GASTROINTESTINAL HYPOMOTILITY [None]
